FAERS Safety Report 17260105 (Version 1)
Quarter: 2020Q1

REPORT INFORMATION
  Report Type: Report from Study
  Country: IT (occurrence: IT)
  Receive Date: 20200111
  Receipt Date: 20200111
  Transmission Date: 20200409
  Serious: Yes (Other)
  Sender: FDA-Public Use
  Company Number: IT-TEVA-2019-IT-1118933

PATIENT
  Age: 60 Year
  Sex: Male

DRUGS (2)
  1. URSODEOXYCHOLIC ACID [Suspect]
     Active Substance: URSODIOL
     Indication: CHOLELITHIASIS
     Dosage: 450 MG, 1 DAY
     Route: 048
     Dates: start: 20190101, end: 20190204
  2. IMATINIB TEVA 100 MG HARD CAPSULES [Concomitant]
     Active Substance: IMATINIB
     Indication: DERMATOFIBROSARCOMA PROTUBERANS
     Dosage: 500 MG
     Route: 048

REACTIONS (1)
  - Biliary colic [Recovered/Resolved]

NARRATIVE: CASE EVENT DATE: 20190204
